FAERS Safety Report 7510109-1 (Version None)
Quarter: 2011Q2

REPORT INFORMATION
  Report Type: 
  Country: None (occurrence: None)
  Receive Date: 20110527
  Receipt Date: 20110524
  Transmission Date: 20111010
  Serious: Yes (Disabling, Other)
  Sender: FDA-Public Use
  Company Number: US-PFIZER INC-2011112540

PATIENT
  Sex: Female
  Weight: 112.93 kg

DRUGS (7)
  1. GABAPENTIN [Suspect]
     Indication: FIBROMYALGIA
  2. GEODON [Suspect]
     Indication: PSYCHOTIC DISORDER
  3. GABAPENTIN [Suspect]
     Indication: MIGRAINE PROPHYLAXIS
     Dosage: 800 MG, 4X/DAY
     Route: 048
     Dates: start: 20100101
  4. GEODON [Suspect]
     Indication: MANIA
     Dosage: 160 MG, 1X/DAY
     Dates: start: 20070101
  5. VENLAFAXINE HCL [Suspect]
     Indication: DEPRESSION
     Dosage: 300 MG, 1X/DAY
     Route: 048
     Dates: start: 20070101
  6. METFORMIN [Concomitant]
     Indication: DIABETES MELLITUS
     Dosage: UNK
  7. ALPRAZOLAM [Suspect]
     Indication: ANXIETY DISORDER
     Dosage: 2 MG, 4X/DAY
     Route: 048
     Dates: start: 20090101

REACTIONS (7)
  - FIBROMYALGIA [None]
  - ANXIETY DISORDER [None]
  - FALL [None]
  - MENTAL DISORDER [None]
  - FOOT FRACTURE [None]
  - URINARY INCONTINENCE [None]
  - BLOOD SODIUM DECREASED [None]
